FAERS Safety Report 20903710 (Version 1)
Quarter: 2022Q2

REPORT INFORMATION
  Report Type: Spontaneous
  Country: JP (occurrence: JP)
  Receive Date: 20220602
  Receipt Date: 20220602
  Transmission Date: 20220721
  Serious: Yes (Other)
  Sender: FDA-Public Use
  Company Number: JP-NBI-S202200104BIPI

PATIENT

DRUGS (2)
  1. GILOTRIF [Suspect]
     Active Substance: AFATINIB
     Indication: Non-small cell lung cancer
     Route: 065
  2. GILOTRIF [Suspect]
     Active Substance: AFATINIB
     Indication: EGFR gene mutation

REACTIONS (1)
  - Malignant neoplasm progression [Unknown]
